FAERS Safety Report 16170082 (Version 2)
Quarter: 2019Q2

REPORT INFORMATION
  Report Type: Spontaneous
  Country: US (occurrence: US)
  Receive Date: 20190408
  Receipt Date: 20190624
  Transmission Date: 20190711
  Serious: Yes (Hospitalization, Other)
  Sender: FDA-Public Use
  Company Number: US-PFIZER INC-2019144080

PATIENT
  Age: 61 Year
  Sex: Female

DRUGS (1)
  1. INLYTA [Suspect]
     Active Substance: AXITINIB
     Indication: RENAL CANCER STAGE IV
     Dosage: UNK
     Dates: start: 201902, end: 2019

REACTIONS (11)
  - Feeding disorder [Unknown]
  - Stomatitis [Unknown]
  - Loss of personal independence in daily activities [Unknown]
  - Oral disorder [Unknown]
  - Neoplasm progression [Unknown]
  - Renal failure [Unknown]
  - Gait inability [Unknown]
  - Blood pressure decreased [Unknown]
  - Pain [Unknown]
  - Aphasia [Unknown]
  - Asthenia [Unknown]

NARRATIVE: CASE EVENT DATE: 2019
